FAERS Safety Report 6508166-4 (Version None)
Quarter: 2009Q4

REPORT INFORMATION
  Report Type: 
  Country: None (occurrence: None)
  Receive Date: 20091221
  Receipt Date: 20081230
  Transmission Date: 20100525
  Serious: No
  Sender: FDA-Public Use
  Company Number: US-ASTRAZENECA-2008UW27721

PATIENT
  Age: 62 Year
  Sex: Female
  Weight: 63 kg

DRUGS (8)
  1. CRESTOR [Suspect]
     Indication: BLOOD CHOLESTEROL
     Route: 048
     Dates: start: 20081202, end: 20081230
  2. CRESTOR [Suspect]
     Indication: TYPE IIA HYPERLIPIDAEMIA
     Route: 048
     Dates: start: 20081202, end: 20081230
  3. CRESTOR [Suspect]
     Route: 048
     Dates: start: 20081230
  4. CRESTOR [Suspect]
     Route: 048
     Dates: start: 20081230
  5. AVELOX [Concomitant]
  6. SEROQUEL [Concomitant]
     Route: 048
  7. LORAZEPAM [Concomitant]
  8. SYNTHROID [Concomitant]

REACTIONS (6)
  - ARTHRALGIA [None]
  - FEELING ABNORMAL [None]
  - MUSCLE STRAIN [None]
  - MYALGIA [None]
  - PRURITUS [None]
  - VITREOUS FLOATERS [None]
